FAERS Safety Report 21161517 (Version 1)
Quarter: 2022Q3

REPORT INFORMATION
  Report Type: Spontaneous
  Country: US (occurrence: US)
  Receive Date: 20220802
  Receipt Date: 20220802
  Transmission Date: 20221026
  Serious: No
  Sender: FDA-Public Use
  Company Number: US-BIOGEN-2022BI01144089

PATIENT
  Sex: Female

DRUGS (8)
  1. AVONEX [Suspect]
     Active Substance: INTERFERON BETA-1A
     Indication: Multiple sclerosis
     Route: 050
  2. AMPYRA [Suspect]
     Active Substance: DALFAMPRIDINE
     Indication: Product used for unknown indication
     Route: 050
  3. LATANOPROST [Concomitant]
     Active Substance: LATANOPROST
     Route: 050
  4. METHOCARBAMOL [Concomitant]
     Active Substance: METHOCARBAMOL
     Route: 050
  5. HYDROCHLOROTHIAZIDE [Concomitant]
     Active Substance: HYDROCHLOROTHIAZIDE
     Route: 050
  6. ALENDRONATE SODIUM [Concomitant]
     Active Substance: ALENDRONATE SODIUM
     Route: 050
  7. ASPIRIN [Concomitant]
     Active Substance: ASPIRIN
     Route: 050
  8. MAYZENT [Concomitant]
     Active Substance: SIPONIMOD
     Route: 050

REACTIONS (1)
  - Multiple sclerosis [Unknown]
